FAERS Safety Report 8999044 (Version 2)
Quarter: 2013Q1

REPORT INFORMATION
  Report Type: Spontaneous
  Country: CN (occurrence: CN)
  Receive Date: 20130103
  Receipt Date: 20130122
  Transmission Date: 20140127
  Serious: Yes (Hospitalization)
  Sender: FDA-Public Use
  Company Number: CN-BRISTOL-MYERS SQUIBB COMPANY-17242850

PATIENT
  Age: 60 Year
  Sex: Female

DRUGS (3)
  1. TAXOL [Suspect]
     Indication: OVARIAN CANCER
     Dosage: 2ND COURSE ON 23DEC12
     Route: 041
     Dates: start: 20121125
  2. PARAPLATIN [Suspect]
     Indication: OVARIAN CANCER
     Dosage: 2ND COURSE ON 23DEC12
     Route: 041
     Dates: start: 20121125
  3. CARBOPLATIN [Suspect]
     Indication: OVARIAN CANCER
     Dosage: 23DEC2012
     Route: 041
     Dates: start: 20121125

REACTIONS (1)
  - Pyrexia [Recovered/Resolved]
